FAERS Safety Report 6476482-0 (Version None)
Quarter: 2009Q4

REPORT INFORMATION
  Report Type: 
  Country: None (occurrence: None)
  Receive Date: 20091207
  Receipt Date: 20091202
  Transmission Date: 20100525
  Serious: Yes (Other)
  Sender: FDA-Public Use
  Company Number: US-JNJFOC-20091201607

PATIENT
  Sex: Female
  Weight: 63.05 kg

DRUGS (9)
  1. IBUPROFEN [Suspect]
     Indication: MUSCULOSKELETAL PAIN
  2. ASPIRIN [Suspect]
     Indication: CARDIOVASCULAR EVENT PROPHYLAXIS
  3. RELISTOR [Suspect]
     Indication: CONSTIPATION
     Route: 058
  4. THEO-DUR [Concomitant]
     Indication: ASTHMA
  5. ADVAIR DISKUS 100/50 [Concomitant]
     Indication: ASTHMA
  6. SYNTHROID [Concomitant]
     Indication: HYPOTHYROIDISM
  7. FOSAMAX [Concomitant]
     Indication: OSTEOPOROSIS
  8. PROTONIX [Concomitant]
     Indication: GASTROOESOPHAGEAL REFLUX DISEASE
  9. CYMBALTA [Concomitant]
     Indication: DEPRESSION

REACTIONS (2)
  - HAEMATOCHEZIA [None]
  - SYNCOPE [None]
